FAERS Safety Report 4612183-9 (Version None)
Quarter: 2005Q1

REPORT INFORMATION
  Report Type: 
  Country: None (occurrence: None)
  Receive Date: 20050317
  Receipt Date: 20040526
  Transmission Date: 20050727
  Serious: Yes (Death, Life-Threatening, Hospitalization, Disabling, Other)
  Sender: FDA-Public Use
  Company Number: BE-MERCK-0405BEL00041

PATIENT
  Age: 66 Year
  Sex: Male
  Weight: 78 kg

DRUGS (7)
  1. CANCIDAS [Suspect]
     Indication: ASPERGILLOSIS
     Route: 048
     Dates: start: 20031025, end: 20031025
  2. CANCIDAS [Suspect]
     Route: 042
     Dates: start: 20031026, end: 20031103
  3. VFEND [Concomitant]
     Indication: ASPERGILLOSIS
     Route: 048
     Dates: start: 20030801, end: 20031026
  4. MEDROL [Suspect]
     Indication: MYELOMA RECURRENCE
     Route: 048
     Dates: start: 20030926, end: 20031025
  5. MEDROL [Suspect]
     Indication: MULTIPLE MYELOMA
     Route: 048
     Dates: start: 20030926, end: 20031025
  6. ALKERAN [Suspect]
     Indication: MYELOMA RECURRENCE
     Route: 048
     Dates: start: 20030926, end: 20031001
  7. ALKERAN [Suspect]
     Indication: MULTIPLE MYELOMA
     Route: 048
     Dates: start: 20030926, end: 20031001

REACTIONS (3)
  - ASPERGILLOSIS [None]
  - MULTIPLE MYELOMA [None]
  - SHOCK [None]
